FAERS Safety Report 8393983-9 (Version None)
Quarter: 2012Q2

REPORT INFORMATION
  Report Type: 
  Country: None (occurrence: None)
  Receive Date: 20120530
  Receipt Date: 20120525
  Transmission Date: 20120825
  Serious: Yes (Other)
  Sender: FDA-Public Use
  Company Number: US-BAYER-2012-052707

PATIENT
  Age: 32 Year
  Sex: Female

DRUGS (1)
  1. MIRENA [Suspect]
     Indication: CONTRACEPTION
     Dosage: 20 MCG/24HR, CONT
     Route: 015
     Dates: start: 20100501, end: 20120522

REACTIONS (7)
  - ANXIETY [None]
  - ACNE [None]
  - DEPRESSION [None]
  - MOOD SWINGS [None]
  - VAGINAL HAEMORRHAGE [None]
  - AMENORRHOEA [None]
  - WEIGHT INCREASED [None]
